FAERS Safety Report 7247809-7 (Version None)
Quarter: 2011Q1

REPORT INFORMATION
  Report Type: 
  Country: None (occurrence: None)
  Receive Date: 20110127
  Receipt Date: 20110121
  Transmission Date: 20110831
  Serious: Yes (Hospitalization)
  Sender: FDA-Public Use
  Company Number: DE-PFIZER INC-2011014902

PATIENT
  Age: 52 Year
  Sex: Male
  Weight: 86 kg

DRUGS (6)
  1. GEMTUZUMAB OZOGAMICIN [Suspect]
     Indication: ACUTE MYELOID LEUKAEMIA
     Dosage: 3 MG, UNK
     Route: 042
     Dates: start: 20110107
  2. TRETINOIN [Suspect]
     Indication: ACUTE MYELOID LEUKAEMIA
     Dosage: 45 MG/ 15MG, UNK
     Route: 042
     Dates: start: 20110112, end: 20110119
  3. IDARUBICIN [Suspect]
     Indication: ACUTE MYELOID LEUKAEMIA
     Dosage: 12 MG/M2, UNK
     Route: 042
     Dates: start: 20110107
  4. ETOPOSIDE [Suspect]
     Indication: ACUTE MYELOID LEUKAEMIA
     Dosage: 100 MG/M2, UNK
     Route: 042
     Dates: start: 20110107
  5. PIPERACILLIN AND TAZOBACTAM [Concomitant]
     Indication: NEUTROPENIA
  6. PIPERACILLIN AND TAZOBACTAM [Concomitant]
     Indication: PYREXIA
     Dosage: 4.5 G, 3X/DAY
     Route: 042
     Dates: start: 20110118, end: 20110120

REACTIONS (1)
  - VENOOCCLUSIVE LIVER DISEASE [None]
